FAERS Safety Report 20624883 (Version 1)
Quarter: 2022Q1

REPORT INFORMATION
  Report Type: Spontaneous
  Country: US (occurrence: US)
  Receive Date: 20220323
  Receipt Date: 20220323
  Transmission Date: 20220423
  Serious: No
  Sender: FDA-Public Use
  Company Number: US-STRIDES ARCOLAB LIMITED-2022SP002057

PATIENT
  Age: 20 Year
  Sex: Male

DRUGS (24)
  1. HYDROCORTISONE [Suspect]
     Active Substance: HYDROCORTISONE
     Indication: Oral candidiasis
     Dosage: UNK
     Route: 065
  2. HYDROCORTISONE [Suspect]
     Active Substance: HYDROCORTISONE
     Indication: Cheilitis
  3. NYSTATIN [Suspect]
     Active Substance: NYSTATIN
     Indication: Oral candidiasis
     Dosage: UNK
     Route: 065
  4. NYSTATIN [Suspect]
     Active Substance: NYSTATIN
     Indication: Cheilitis
  5. PREDNISONE [Suspect]
     Active Substance: PREDNISONE
     Indication: Oral candidiasis
     Dosage: UNK
     Route: 065
  6. PREDNISONE [Suspect]
     Active Substance: PREDNISONE
     Indication: Cheilitis
  7. DOXYCYCLINE [Suspect]
     Active Substance: DOXYCYCLINE
     Indication: Candida infection
     Dosage: UNK
     Route: 065
  8. KETOCONAZOLE [Suspect]
     Active Substance: KETOCONAZOLE
     Indication: Oral candidiasis
     Dosage: UNK
     Route: 065
  9. KETOCONAZOLE [Suspect]
     Active Substance: KETOCONAZOLE
     Indication: Candida infection
  10. PETROLATUM [Suspect]
     Active Substance: PETROLATUM
     Indication: Oral candidiasis
     Dosage: UNK
     Route: 065
  11. PETROLATUM [Suspect]
     Active Substance: PETROLATUM
     Indication: Cheilitis
     Dosage: UNK
     Route: 065
  12. PETROLATUM [Suspect]
     Active Substance: PETROLATUM
     Indication: Candida infection
     Dosage: UNK
     Route: 065
  13. MOMETASONE [Suspect]
     Active Substance: MOMETASONE
     Indication: Oral candidiasis
     Dosage: UNK
     Route: 065
  14. MOMETASONE [Suspect]
     Active Substance: MOMETASONE
     Indication: Cheilitis
  15. SULFAMETHOXAZOLE\TRIMETHOPRIM [Suspect]
     Active Substance: SULFAMETHOXAZOLE\TRIMETHOPRIM
     Indication: Oral candidiasis
     Dosage: UNK
     Route: 065
  16. SULFAMETHOXAZOLE\TRIMETHOPRIM [Suspect]
     Active Substance: SULFAMETHOXAZOLE\TRIMETHOPRIM
     Indication: Cheilitis
  17. AZITHROMYCIN [Suspect]
     Active Substance: AZITHROMYCIN
     Indication: Oral candidiasis
     Dosage: UNK
     Route: 065
  18. AZITHROMYCIN [Suspect]
     Active Substance: AZITHROMYCIN
     Indication: Cheilitis
  19. VITAMIN E [Suspect]
     Active Substance: .ALPHA.-TOCOPHEROL
     Indication: Oral candidiasis
     Dosage: UNK
     Route: 065
  20. VITAMIN E [Suspect]
     Active Substance: .ALPHA.-TOCOPHEROL
     Indication: Cheilitis
  21. FLUCONAZOLE [Suspect]
     Active Substance: FLUCONAZOLE
     Indication: Oral candidiasis
     Dosage: UNK
     Route: 065
  22. FLUCONAZOLE [Suspect]
     Active Substance: FLUCONAZOLE
     Indication: Candida infection
     Dosage: UNK
     Route: 065
  23. TACROLIMUS [Concomitant]
     Active Substance: TACROLIMUS
     Indication: Oral candidiasis
     Dosage: UNK
     Route: 065
  24. TACROLIMUS [Concomitant]
     Active Substance: TACROLIMUS
     Indication: Candida infection
     Dosage: UNK
     Route: 065

REACTIONS (2)
  - Drug ineffective [Unknown]
  - Off label use [Unknown]
